FAERS Safety Report 19002779 (Version 1)
Quarter: 2021Q1

REPORT INFORMATION
  Report Type: Spontaneous
  Country: US (occurrence: US)
  Receive Date: 20210312
  Receipt Date: 20210312
  Transmission Date: 20210420
  Serious: No
  Sender: FDA-Public Use
  Company Number: US-DRREDDYS-USA/USA/21/0132545

PATIENT
  Age: 139 Month
  Sex: Male

DRUGS (1)
  1. MEMANTINE HYDROCHLORIDE. [Suspect]
     Active Substance: MEMANTINE HYDROCHLORIDE
     Indication: EPILEPTIC ENCEPHALOPATHY

REACTIONS (2)
  - Nausea [Unknown]
  - Vomiting [Unknown]
